FAERS Safety Report 10218931 (Version 1)
Quarter: 2014Q2

REPORT INFORMATION
  Report Type: Spontaneous
  Country: US (occurrence: None)
  Receive Date: 20140604
  Receipt Date: 20140604
  Transmission Date: 20141212
  Serious: Yes (Disabling, Other)
  Sender: FDA-Public Use
  Company Number: None

PATIENT
  Age: 47 Year
  Sex: Female
  Weight: 58.97 kg

DRUGS (1)
  1. LEVOFLOXACIN [Suspect]
     Indication: SINUSITIS
     Dosage: 21 DAYS AND 7 DAYS, 750 MG (1 PILL), ONCE DAILY, TAKEN BY MOUTH
     Route: 048

REACTIONS (25)
  - Impaired healing [None]
  - Arthralgia [None]
  - Arthralgia [None]
  - Pruritus generalised [None]
  - Multiple allergies [None]
  - Night sweats [None]
  - Paraesthesia [None]
  - Cold sweat [None]
  - Diplopia [None]
  - Neck pain [None]
  - Neck pain [None]
  - Heart rate irregular [None]
  - Myalgia [None]
  - Insomnia [None]
  - Migraine [None]
  - Oral mucosal blistering [None]
  - Multiple sclerosis [None]
  - Fatigue [None]
  - Malaise [None]
  - Hypoaesthesia [None]
  - Palpitations [None]
  - Photophobia [None]
  - Neuralgia [None]
  - Muscular weakness [None]
  - Gait disturbance [None]
